FAERS Safety Report 23631398 (Version 1)
Quarter: 2024Q1

REPORT INFORMATION
  Report Type: Spontaneous
  Country: CN (occurrence: CN)
  Receive Date: 20240314
  Receipt Date: 20240314
  Transmission Date: 20240409
  Serious: Yes (Other)
  Sender: FDA-Public Use
  Company Number: CN-SA-SAC20240311000801

PATIENT
  Age: 89 Year
  Sex: Male
  Weight: 50 kg

DRUGS (5)
  1. ZOLPIDEM TARTRATE [Suspect]
     Active Substance: ZOLPIDEM TARTRATE
     Indication: Sleep disorder
     Dosage: 10 MG, QD
     Route: 048
     Dates: start: 20240304, end: 20240306
  2. MONTELUKAST SODIUM [Suspect]
     Active Substance: MONTELUKAST SODIUM
     Indication: Chronic obstructive pulmonary disease
     Dosage: 10 MG, QD
     Route: 048
     Dates: start: 20240301, end: 20240306
  3. MONTELUKAST SODIUM [Suspect]
     Active Substance: MONTELUKAST SODIUM
     Indication: Lower respiratory tract infection
  4. PERPHENAZINE [Concomitant]
     Active Substance: PERPHENAZINE
     Dosage: 2 MG, CONT
     Route: 048
     Dates: start: 202403
  5. ZOPICLONE [Concomitant]
     Active Substance: ZOPICLONE
     Dosage: 7.5 MG, HS
     Route: 048
     Dates: start: 202403

REACTIONS (5)
  - Hallucination [Recovering/Resolving]
  - Agitation [Recovering/Resolving]
  - Dysphoria [Recovering/Resolving]
  - Gait disturbance [Recovering/Resolving]
  - Product use in unapproved indication [Unknown]

NARRATIVE: CASE EVENT DATE: 20240305
